FAERS Safety Report 5086513-0 (Version None)
Quarter: 2006Q3

REPORT INFORMATION
  Report Type: 
  Country: None (occurrence: None)
  Receive Date: 20060821
  Receipt Date: 20060821
  Transmission Date: 20061208
  Serious: Yes (Other)
  Sender: FDA-Public Use
  Company Number: None

PATIENT
  Age: 26 Year
  Sex: Female
  Weight: 54.4316 kg

DRUGS (1)
  1. PSEUDOVENT 400 ETHEX CORP [Suspect]
     Indication: ILL-DEFINED DISORDER
     Dosage: 1 CAPSULE     EVERY 12 HOURS  PO
     Route: 048
     Dates: start: 20060801, end: 20060816

REACTIONS (2)
  - INSOMNIA [None]
  - NIGHTMARE [None]
